FAERS Safety Report 7500561-X (Version None)
Quarter: 2011Q2

REPORT INFORMATION
  Report Type: 
  Country: None (occurrence: None)
  Receive Date: 20110524
  Receipt Date: 20110517
  Transmission Date: 20111010
  Serious: No
  Sender: FDA-Public Use
  Company Number: US-PFIZER INC-2011106022

PATIENT
  Sex: Female

DRUGS (2)
  1. PREMARIN [Suspect]
     Dosage: 0.65 MG, UNK
     Dates: end: 20110501
  2. MEDROXYPROGESTERONE ACETATE [Suspect]
     Dosage: 5 MG, UNK
     Dates: end: 20110501

REACTIONS (5)
  - NASOPHARYNGITIS [None]
  - NAUSEA [None]
  - DIZZINESS [None]
  - HYPERSENSITIVITY [None]
  - TINNITUS [None]
